FAERS Safety Report 4640762-1 (Version None)
Quarter: 2005Q2

REPORT INFORMATION
  Report Type: 
  Country: None (occurrence: None)
  Receive Date: 20050324
  Receipt Date: 20041229
  Transmission Date: 20051028
  Serious: No
  Sender: FDA-Public Use
  Company Number: 211465

PATIENT
  Age: 60 Year
  Sex: Female
  Weight: 91.2 kg

DRUGS (2)
  1. AVASTIN [Suspect]
     Indication: COLORECTAL CANCER METASTATIC
     Dosage: 460 MG, Q2W, INTRAVENOUS
     Route: 042
  2. COUMADIN [Concomitant]

REACTIONS (1)
  - HAEMATURIA [None]
